FAERS Safety Report 5441971-4 (Version None)
Quarter: 2007Q3

REPORT INFORMATION
  Report Type: 
  Country: None (occurrence: None)
  Receive Date: 20070904
  Receipt Date: 20070828
  Transmission Date: 20080115
  Serious: Yes (Hospitalization)
  Sender: FDA-Public Use
  Company Number: B0480880A

PATIENT
  Age: 68 Year
  Sex: Female

DRUGS (10)
  1. ZOVIRAX [Suspect]
     Indication: HERPES ZOSTER
     Dosage: 250MG PER DAY
     Route: 042
     Dates: start: 20070721, end: 20070724
  2. VALTREX [Suspect]
     Indication: HERPES ZOSTER
     Dosage: 1000MG THREE TIMES PER DAY
     Route: 048
     Dates: start: 20070722, end: 20070725
  3. MEYLON [Concomitant]
     Indication: DIZZINESS
     Dosage: 60MG PER DAY
     Route: 042
     Dates: start: 20070724, end: 20070724
  4. LOXONIN [Concomitant]
     Indication: PAIN
     Route: 048
     Dates: start: 20070724
  5. ISALON [Concomitant]
     Indication: PAIN
     Route: 048
     Dates: start: 20070724
  6. METHYCOBAL [Concomitant]
     Indication: PAIN
     Route: 048
     Dates: start: 20070724
  7. MERISLON [Concomitant]
     Indication: DIZZINESS
     Route: 048
     Dates: start: 20070724
  8. NAUZELIN [Concomitant]
     Indication: DIZZINESS
     Route: 048
     Dates: start: 20070724
  9. ASPIRIN [Concomitant]
     Route: 048
     Dates: start: 20050205
  10. TANATRIL [Concomitant]
     Indication: HYPERTENSION
     Route: 048
     Dates: start: 20050304

REACTIONS (10)
  - AGITATION [None]
  - ANOREXIA [None]
  - CONFUSIONAL STATE [None]
  - DIZZINESS [None]
  - DYSARTHRIA [None]
  - DYSLALIA [None]
  - NAUSEA [None]
  - NERVOUS SYSTEM DISORDER [None]
  - NYSTAGMUS [None]
  - VOMITING [None]
